FAERS Safety Report 18923511 (Version 1)
Quarter: 2021Q1

REPORT INFORMATION
  Report Type: Spontaneous
  Country: US (occurrence: US)
  Receive Date: 20210222
  Receipt Date: 20210222
  Transmission Date: 20210420
  Serious: Yes (Hospitalization)
  Sender: FDA-Public Use
  Company Number: US-FERRINGPH-2020FE06055

PATIENT
  Age: 73 Year
  Sex: Male

DRUGS (4)
  1. DESMOPRESSIN [Suspect]
     Active Substance: DESMOPRESSIN
     Indication: HYPOPITUITARISM
     Dosage: 2 SPRAYS, 2 TIMES DAILY
     Route: 045
     Dates: start: 201910
  2. DESMOPRESSIN [Suspect]
     Active Substance: DESMOPRESSIN
     Indication: HYPOPITUITARISM
     Dosage: 2 SPRAYS INTRANASALLY, 2 TIMES DAILY
     Route: 065
     Dates: start: 2013
  3. DESMOPRESSIN [Suspect]
     Active Substance: DESMOPRESSIN
     Indication: DIABETES INSIPIDUS
     Dosage: 2 SPRAYS, 2 TIMES DAILY
     Route: 045
     Dates: start: 201910, end: 201910
  4. DESMOPRESSIN [Suspect]
     Active Substance: DESMOPRESSIN
     Dosage: UNK
     Route: 045
     Dates: start: 2019

REACTIONS (3)
  - Blood sodium decreased [Recovered/Resolved]
  - Out of specification product use [Unknown]
  - Recalled product administered [Unknown]

NARRATIVE: CASE EVENT DATE: 201910
